FAERS Safety Report 21504881 (Version 1)
Quarter: 2022Q4

REPORT INFORMATION
  Report Type: Spontaneous
  Country: TH (occurrence: TH)
  Receive Date: 20221025
  Receipt Date: 20221025
  Transmission Date: 20230112
  Serious: Yes (Death, Other)
  Sender: FDA-Public Use
  Company Number: TH-009507513-2210THA008091

PATIENT
  Age: 88 Year
  Sex: Male

DRUGS (1)
  1. ZERBAXA [Suspect]
     Active Substance: CEFTOLOZANE SULFATE\TAZOBACTAM SODIUM
     Indication: Pneumonia
     Dosage: 0.375 G IV EVERY 8 HOURS
     Route: 042
     Dates: start: 20200604, end: 20200608

REACTIONS (4)
  - Death [Fatal]
  - Product use in unapproved indication [Recovered/Resolved]
  - Incorrect product administration duration [Recovered/Resolved]
  - Incorrect dose administered [Recovered/Resolved]

NARRATIVE: CASE EVENT DATE: 20200601
